FAERS Safety Report 5207878-2 (Version None)
Quarter: 2007Q1

REPORT INFORMATION
  Report Type: 
  Country: None (occurrence: None)
  Receive Date: 20070112
  Receipt Date: 20070104
  Transmission Date: 20070707
  Serious: Yes (Other)
  Sender: FDA-Public Use
  Company Number: NL-PFIZER INC-2007002611

PATIENT
  Sex: Female
  Weight: 60 kg

DRUGS (3)
  1. DETRUSITOL SR [Suspect]
     Indication: MICTURITION URGENCY
     Route: 048
  2. STEDIRIL [Concomitant]
     Route: 048
  3. FERROGRADUMET [Concomitant]
     Route: 048

REACTIONS (1)
  - ARTHRALGIA [None]
